FAERS Safety Report 5284620-0 (Version None)
Quarter: 2007Q2

REPORT INFORMATION
  Report Type: 
  Country: None (occurrence: None)
  Receive Date: 20070403
  Receipt Date: 20070326
  Transmission Date: 20071010
  Serious: Yes (Hospitalization)
  Sender: FDA-Public Use
  Company Number: DE-ROCHE-427452

PATIENT
  Age: 54 Year
  Sex: Female
  Weight: 51 kg

DRUGS (5)
  1. PEG-INTERFERON ALFA 2A (RO 25-8310) [Suspect]
     Dosage: DESCRIBED AS A 'HIGH DOSE INDUCTION'
     Route: 058
     Dates: start: 20041129, end: 20051221
  2. PEG-INTERFERON ALFA 2A (RO 25-8310) [Suspect]
     Route: 058
     Dates: start: 20051228, end: 20060404
  3. RIBAVIRIN [Suspect]
     Route: 048
     Dates: start: 20041129, end: 20060411
  4. PENTASA [Concomitant]
  5. MAREEN [Concomitant]

REACTIONS (1)
  - ENTERITIS [None]
